FAERS Safety Report 11925512 (Version 1)
Quarter: 2016Q1

REPORT INFORMATION
  Report Type: Spontaneous
  Country: US (occurrence: US)
  Receive Date: 20160118
  Receipt Date: 20160118
  Transmission Date: 20160526
  Serious: Yes (Other)
  Sender: FDA-Public Use
  Company Number: US-DEP_13418_2016

PATIENT
  Age: 59 Year
  Sex: Female
  Weight: 108 kg

DRUGS (10)
  1. NUCYNTA [Suspect]
     Active Substance: TAPENTADOL HYDROCHLORIDE
     Indication: PAIN
     Dates: start: 201511, end: 2015
  2. LISINOPRIL. [Concomitant]
     Active Substance: LISINOPRIL
     Indication: BLOOD PRESSURE ABNORMAL
     Dosage: TAKING FOR 6 TO 8 YEARS, 20/25 MG, ONCE DAILY
  3. MULTIVITAMIN [Concomitant]
     Active Substance: VITAMINS
     Dosage: DF, ONCE A DAY
  4. METFORMIN [Suspect]
     Active Substance: METFORMIN HYDROCHLORIDE
     Indication: DIABETES MELLITUS
  5. PAIN MEDICATION [Concomitant]
     Active Substance: UNSPECIFIED INGREDIENT
     Indication: PAIN
     Dosage: DF, INJECTION IN HER BACK
     Dates: start: 20151120
  6. UNSPECIFIED STEROID [Concomitant]
     Active Substance: UNSPECIFIED INGREDIENT
     Indication: PAIN
     Dosage: DF
     Dates: start: 20151120
  7. LYRICA [Suspect]
     Active Substance: PREGABALIN
     Indication: INTERVERTEBRAL DISC PROTRUSION
     Dates: start: 2014
  8. NUCYNTA [Suspect]
     Active Substance: TAPENTADOL HYDROCHLORIDE
     Indication: BURNING SENSATION
     Dates: start: 2015, end: 20151216
  9. LYRICA [Suspect]
     Active Substance: PREGABALIN
     Indication: NERVE COMPRESSION
  10. ASPIRIN. [Concomitant]
     Active Substance: ASPIRIN
     Indication: CARDIAC ABLATION

REACTIONS (9)
  - Pruritus generalised [Recovered/Resolved]
  - Formication [Recovered/Resolved]
  - Impaired driving ability [Recovered/Resolved]
  - Drug ineffective [Recovered/Resolved]
  - Discomfort [Recovered/Resolved]
  - Feeling abnormal [Recovered/Resolved]
  - Pruritus [Recovered/Resolved]
  - Product quality issue [Recovered/Resolved]
  - Toxicity to various agents [Recovered/Resolved]

NARRATIVE: CASE EVENT DATE: 2015
